FAERS Safety Report 8183511-5 (Version None)
Quarter: 2012Q1

REPORT INFORMATION
  Report Type: 
  Country: None (occurrence: None)
  Receive Date: 20120305
  Receipt Date: 20120224
  Transmission Date: 20120608
  Serious: Yes (Hospitalization)
  Sender: FDA-Public Use
  Company Number: US-BAYER-2011-085365

PATIENT
  Age: 41 Year
  Sex: Female
  Weight: 74.83 kg

DRUGS (19)
  1. YAZ [Suspect]
     Indication: ACNE
     Dosage: UNK
     Dates: start: 20010101
  2. NAPROXEN [Concomitant]
     Dosage: UNK
     Dates: start: 19800101, end: 20040101
  3. FLEXERIL [Concomitant]
     Indication: MUSCLE RELAXANT THERAPY
     Dosage: UNK
     Dates: start: 19990101, end: 20110101
  4. LORTAB [Concomitant]
     Indication: MIGRAINE
     Dosage: UNK
     Dates: start: 20000101, end: 20110101
  5. CELEBREX [Concomitant]
     Indication: RHEUMATOID ARTHRITIS
     Dosage: UNK
     Dates: start: 20010101, end: 20110101
  6. METHADON HCL TAB [Concomitant]
     Dosage: 20 MG, TID
  7. NEXIUM [Concomitant]
     Indication: GASTROOESOPHAGEAL REFLUX DISEASE
     Dosage: UNK
     Dates: start: 20010101, end: 20110101
  8. UNIVASC [Concomitant]
     Dosage: 7.5 MG, QD
  9. HYDROMET SYRUP [Concomitant]
     Indication: COUGH
     Dosage: UNK
     Dates: start: 20010101, end: 20110101
  10. MAXZIDE [Concomitant]
     Dosage: 1 TABLET, QD
  11. YASMIN [Suspect]
     Indication: ACNE
     Dosage: UNK
     Dates: start: 20010101
  12. YASMIN [Suspect]
     Indication: PREMENSTRUAL SYNDROME
  13. YAZ [Suspect]
     Indication: PREMENSTRUAL SYNDROME
  14. MARIJUANA [Concomitant]
     Indication: FEELING OF RELAXATION
  15. LORTAB [Concomitant]
     Indication: BACK PAIN
  16. SKELAXIN [Concomitant]
     Dosage: 400 MG, TID
  17. QUINAPRIL [Concomitant]
     Indication: BLOOD PRESSURE ABNORMAL
     Dosage: UNK
     Dates: start: 20010101, end: 20110101
  18. AMITRIPTYLINE HCL [Concomitant]
     Dosage: 25 MG, QD
  19. KLONOPIN [Concomitant]
     Indication: ANXIETY

REACTIONS (14)
  - DECREASED APPETITE [None]
  - HYPERTENSION [None]
  - GALLBLADDER INJURY [None]
  - IMPAIRED GASTRIC EMPTYING [None]
  - URINE ANALYSIS ABNORMAL [None]
  - BILIARY DYSKINESIA [None]
  - GASTROOESOPHAGEAL REFLUX DISEASE [None]
  - HYPOKALAEMIA [None]
  - HEADACHE [None]
  - INJURY [None]
  - ANXIETY [None]
  - PAIN [None]
  - RENAL FAILURE ACUTE [None]
  - FEAR [None]
